FAERS Safety Report 10525135 (Version 1)
Quarter: 2014Q4

REPORT INFORMATION
  Report Type: Spontaneous
  Country: US (occurrence: US)
  Receive Date: 20141017
  Receipt Date: 20141017
  Transmission Date: 20150528
  Serious: Yes (Other)
  Sender: FDA-Public Use
  Company Number: US-AMGEN-USASP2014078785

PATIENT
  Age: 84 Year
  Sex: Female
  Weight: 61.22 kg

DRUGS (1)
  1. NPLATE [Suspect]
     Active Substance: ROMIPLOSTIM
     Indication: IMMUNE THROMBOCYTOPENIC PURPURA
     Dosage: 62 MUG, QWK
     Route: 058
     Dates: start: 20140715, end: 20140916

REACTIONS (3)
  - Therapeutic response decreased [Unknown]
  - Platelet count decreased [Unknown]
  - Breast cancer [Unknown]

NARRATIVE: CASE EVENT DATE: 20140730
